FAERS Safety Report 23331122 (Version 1)
Quarter: 2023Q4

REPORT INFORMATION
  Report Type: Report from Study
  Country: CA (occurrence: CA)
  Receive Date: 20231222
  Receipt Date: 20231222
  Transmission Date: 20240110
  Serious: Yes (Other)
  Sender: FDA-Public Use
  Company Number: CA-JNJFOC-20230861333

PATIENT
  Age: 58 Year
  Sex: Female

DRUGS (1)
  1. REMICADE [Suspect]
     Active Substance: INFLIXIMAB
     Indication: Ankylosing spondylitis
     Route: 041

REACTIONS (4)
  - Breast cancer [Not Recovered/Not Resolved]
  - Breast fibrosis [Recovered/Resolved]
  - Arthritis [Recovered/Resolved]
  - Breast inflammation [Unknown]

NARRATIVE: CASE EVENT DATE: 20230822
